FAERS Safety Report 9894094 (Version 3)
Quarter: 2014Q1

REPORT INFORMATION
  Report Type: Spontaneous
  Country: US (occurrence: US)
  Receive Date: 20140213
  Receipt Date: 20140318
  Transmission Date: 20141002
  Serious: Yes (Hospitalization, Other)
  Sender: FDA-Public Use
  Company Number: US-ELI_LILLY_AND_COMPANY-US201402002633

PATIENT
  Age: 39 Year
  Sex: Male

DRUGS (4)
  1. ZYPREXA [Suspect]
     Indication: SCHIZOAFFECTIVE DISORDER
     Dosage: 12.5 MG, QD
     Route: 048
  2. ZYPREXA [Suspect]
     Dosage: 15 MG, UNKNOWN
     Route: 048
  3. ZYPREXA [Suspect]
     Dosage: 40 MG, UNKNOWN
     Route: 048
  4. LIPITOR [Concomitant]
     Indication: BLOOD CHOLESTEROL INCREASED
     Dosage: 10 MG, UNKNOWN
     Route: 065

REACTIONS (3)
  - Thrombosis [Recovered/Resolved]
  - Muscle injury [Unknown]
  - Prescribed overdose [Unknown]
